FAERS Safety Report 7010130-6 (Version None)
Quarter: 2010Q3

REPORT INFORMATION
  Report Type: 
  Country: None (occurrence: None)
  Receive Date: 20100923
  Receipt Date: 20100915
  Transmission Date: 20110219
  Serious: Yes (Other)
  Sender: FDA-Public Use
  Company Number: BR-PFIZER INC-2009227796

PATIENT
  Age: 47 Year
  Sex: Female

DRUGS (4)
  1. CHAMPIX [Suspect]
     Indication: TOBACCO USER
     Dosage: UNK
     Route: 048
     Dates: start: 20090201, end: 20090201
  2. CHAMPIX [Suspect]
     Dosage: UNK
     Route: 048
     Dates: start: 20100501, end: 20100101
  3. CHAMPIX [Suspect]
     Dosage: 1 MG, 2X/DAY, EVERY 12 HOURS
     Route: 048
     Dates: start: 20100101
  4. BROMAZEPAM [Concomitant]
     Indication: PANIC ATTACK
     Dosage: UNK
     Dates: start: 20050101

REACTIONS (3)
  - ELECTROCARDIOGRAM REPOLARISATION ABNORMALITY [None]
  - PALPITATIONS [None]
  - TACHYCARDIA [None]
